FAERS Safety Report 8155134-5 (Version None)
Quarter: 2012Q1

REPORT INFORMATION
  Report Type: 
  Country: None (occurrence: None)
  Receive Date: 20120221
  Receipt Date: 20120213
  Transmission Date: 20120608
  Serious: Yes (Other)
  Sender: FDA-Public Use
  Company Number: JP-VERTEX PHARMACEUTICALS INC.-AE-2012-002366

PATIENT
  Age: 49 Year
  Sex: Male

DRUGS (10)
  1. PEGINTERFERON ALFA-2B [Concomitant]
     Indication: HEPATITIS C
     Route: 058
  2. LORATADINE [Concomitant]
  3. ETHYL ICOSAPENTATE [Concomitant]
  4. TELAVIC (TELAPREVIR) [Suspect]
     Indication: HEPATITIS C
     Route: 048
     Dates: start: 20111220
  5. SODIUM FERROUS CITRATE [Concomitant]
  6. LIVALO [Concomitant]
  7. VALPROATE SODIUM [Concomitant]
  8. RIBAVIRIN [Concomitant]
     Indication: HEPATITIS C
     Route: 048
  9. LANSOPRAZOLE [Concomitant]
  10. POLAPREZINC [Concomitant]

REACTIONS (2)
  - DRUG ERUPTION [None]
  - ANAEMIA [None]
